FAERS Safety Report 22355573 (Version 1)
Quarter: 2023Q2

REPORT INFORMATION
  Report Type: Spontaneous
  Country: US (occurrence: None)
  Receive Date: 20230523
  Receipt Date: 20230523
  Transmission Date: 20230721
  Serious: Yes (Life-Threatening, Other)
  Sender: FDA-Public Use
  Company Number: None

PATIENT
  Age: 29 Year
  Sex: Male
  Weight: 81 kg

DRUGS (1)
  1. TIANEPTINE [Suspect]
     Active Substance: TIANEPTINE
     Indication: Asthenia

REACTIONS (2)
  - Loss of consciousness [None]
  - Overdose [None]

NARRATIVE: CASE EVENT DATE: 20230523
